FAERS Safety Report 8222831-2 (Version None)
Quarter: 2012Q1

REPORT INFORMATION
  Report Type: 
  Country: None (occurrence: None)
  Receive Date: 20120320
  Receipt Date: 20120308
  Transmission Date: 20120608
  Serious: No
  Sender: FDA-Public Use
  Company Number: US-B.I. PHARMACEUTICALS,INC./RIDGEFIELD-2012-BP-04447BP

PATIENT
  Sex: Female

DRUGS (4)
  1. LOPRESSOR [Concomitant]
     Indication: HYPERTENSION
     Dosage: 200 MG
     Route: 048
  2. PRADAXA [Suspect]
     Indication: ATRIAL FIBRILLATION
     Dosage: 300 MG
     Route: 048
     Dates: start: 20110901
  3. SYNTHROID [Concomitant]
     Indication: HYPOTHYROIDISM
     Route: 048
  4. MAXZIDE [Concomitant]
     Indication: HYPERTENSION
     Dosage: 75 MG
     Route: 048

REACTIONS (1)
  - MYALGIA [None]
